FAERS Safety Report 6005090-0 (Version None)
Quarter: 2008Q4

REPORT INFORMATION
  Report Type: 
  Country: None (occurrence: None)
  Receive Date: 20081216
  Receipt Date: 20081209
  Transmission Date: 20090506
  Serious: Yes (Life-Threatening, Other)
  Sender: FDA-Public Use
  Company Number: PHHY2008HR31164

PATIENT
  Sex: Male

DRUGS (8)
  1. LEPONEX [Suspect]
     Indication: SOMATOFORM DISORDER
     Dosage: 25 MG IN THE EVENING
  2. LEPONEX [Suspect]
     Indication: INSOMNIA
  3. SEROXAT ^CIBA-GEIGY^ [Concomitant]
     Indication: INSOMNIA
     Dosage: 20 MG, UNK
     Dates: start: 20080223
  4. SEROXAT ^CIBA-GEIGY^ [Concomitant]
     Indication: SOMATOFORM DISORDER
  5. HELEX [Concomitant]
     Indication: SOMATOFORM DISORDER
     Dosage: 1,1,2  TBL
     Dates: start: 20080223
  6. HELEX [Concomitant]
     Indication: INSOMNIA
  7. AKINETON [Concomitant]
     Dosage: 6 MG, UNK
  8. FLUVOXAMINE MALEATE [Concomitant]
     Dosage: 100 MG, 3 X 1/2

REACTIONS (17)
  - AGGRESSION [None]
  - APATHY [None]
  - DEPRESSION [None]
  - DISCOMFORT [None]
  - DISTURBANCE IN ATTENTION [None]
  - HYPOAESTHESIA [None]
  - INSOMNIA [None]
  - IRRITABILITY [None]
  - LIMB DISCOMFORT [None]
  - PSYCHOTIC DISORDER [None]
  - RESTLESS LEGS SYNDROME [None]
  - RESTLESSNESS [None]
  - SKIN BURNING SENSATION [None]
  - SPINAL OSTEOARTHRITIS [None]
  - SUICIDAL IDEATION [None]
  - SUICIDE ATTEMPT [None]
  - TENSION [None]
